FAERS Safety Report 4727153-X (Version None)
Quarter: 2005Q3

REPORT INFORMATION
  Report Type: 
  Country: None (occurrence: None)
  Receive Date: 20050726
  Receipt Date: 20050726
  Transmission Date: 20060218
  Serious: No
  Sender: FDA-Public Use
  Company Number: None

PATIENT
  Sex: Male

DRUGS (1)
  1. AVINZA [Suspect]
     Dosage: 30 BID

REACTIONS (4)
  - DRUG INTOLERANCE [None]
  - NAUSEA [None]
  - PAIN [None]
  - VOMITING [None]
